FAERS Safety Report 5926705-9 (Version None)
Quarter: 2008Q4

REPORT INFORMATION
  Report Type: 
  Country: None (occurrence: None)
  Receive Date: 20081022
  Receipt Date: 20081020
  Transmission Date: 20090506
  Serious: Yes (Hospitalization)
  Sender: FDA-Public Use
  Company Number: JP-BAYER-200812101BYL

PATIENT
  Age: 64 Year
  Sex: Female
  Weight: 56 kg

DRUGS (12)
  1. AVELOX [Suspect]
     Indication: BRONCHITIS
     Dosage: TOTAL DAILY DOSE: 400 MG  UNIT DOSE: 400 MG
     Route: 048
     Dates: start: 20080815, end: 20080821
  2. MEDICON [Concomitant]
     Indication: BRONCHITIS
     Dosage: TOTAL DAILY DOSE: 45 MG  UNIT DOSE: 15 MG
     Route: 048
     Dates: start: 20080815, end: 20080821
  3. MUCODYNE [Concomitant]
     Indication: BRONCHITIS
     Dosage: TOTAL DAILY DOSE: 1500 MG  UNIT DOSE: 500 MG
     Route: 048
     Dates: start: 20080815, end: 20080821
  4. DASEN [Concomitant]
     Indication: BRONCHITIS
     Dosage: TOTAL DAILY DOSE: 15 MG  UNIT DOSE: 5 MG
     Route: 048
     Dates: start: 20080819, end: 20080821
  5. PREDONINE [Concomitant]
     Indication: IDIOPATHIC THROMBOCYTOPENIC PURPURA
     Dosage: TOTAL DAILY DOSE: 5 MG
     Route: 048
  6. BARACLUDE [Concomitant]
     Indication: BRONCHITIS
     Dosage: TOTAL DAILY DOSE: 5 MG
     Route: 048
  7. FOSAMAC 5MG [Concomitant]
     Indication: BRONCHITIS
     Dosage: TOTAL DAILY DOSE: 5 MG  UNIT DOSE: 5 MG
     Route: 048
  8. SELBEX [Concomitant]
     Indication: BRONCHITIS
     Dosage: TOTAL DAILY DOSE: 150 MG
     Route: 048
  9. ALFAROL [Concomitant]
     Indication: BRONCHITIS
     Dosage: TOTAL DAILY DOSE: 0.5 ?G
     Route: 048
  10. STARSIS [Concomitant]
     Indication: BRONCHITIS
     Dosage: TOTAL DAILY DOSE: 90 MG
     Route: 048
  11. CINAL [Concomitant]
     Indication: BRONCHITIS
     Dosage: TOTAL DAILY DOSE: 12 DF
     Route: 048
  12. CEPHARANTHIN [Concomitant]
     Indication: BRONCHITIS
     Dosage: TOTAL DAILY DOSE: 30 MG
     Route: 048

REACTIONS (1)
  - ENTEROCOLITIS HAEMORRHAGIC [None]
